FAERS Safety Report 5471627-3 (Version None)
Quarter: 2007Q3

REPORT INFORMATION
  Report Type: 
  Country: None (occurrence: None)
  Receive Date: 20070928
  Receipt Date: 20070213
  Transmission Date: 20080115
  Serious: Yes (Other)
  Sender: FDA-Public Use
  Company Number: US-BRISTOL-MYERS SQUIBB COMPANY-13679758

PATIENT

DRUGS (1)
  1. DEFINITY [Suspect]
     Indication: CARDIAC IMAGING PROCEDURE
     Route: 042
     Dates: start: 20070130

REACTIONS (2)
  - HYPOAESTHESIA ORAL [None]
  - PHARYNGEAL HYPOAESTHESIA [None]
